FAERS Safety Report 12796298 (Version 5)
Quarter: 2017Q4

REPORT INFORMATION
  Report Type: Spontaneous
  Country: FR (occurrence: FR)
  Receive Date: 20160929
  Receipt Date: 20171027
  Transmission Date: 20180320
  Serious: Yes (Death, Life-Threatening, Hospitalization, Other)
  Sender: FDA-Public Use
  Company Number: FR-JNJFOC-20160924823

PATIENT
  Age: 34 Year
  Sex: Male

DRUGS (21)
  1. QUETIAPINE. [Suspect]
     Active Substance: QUETIAPINE
     Indication: BIPOLAR DISORDER
     Route: 048
  2. PARACETAMOL [Concomitant]
     Active Substance: ACETAMINOPHEN
     Route: 065
  3. LOXAPINE. [Suspect]
     Active Substance: LOXAPINE
     Indication: BIPOLAR DISORDER
     Route: 048
     Dates: start: 20120614
  4. QUETIAPINE. [Suspect]
     Active Substance: QUETIAPINE
     Indication: AGGRESSION
     Route: 048
     Dates: start: 20120605
  5. QUETIAPINE. [Suspect]
     Active Substance: QUETIAPINE
     Indication: AGITATION
     Route: 048
  6. QUETIAPINE. [Suspect]
     Active Substance: QUETIAPINE
     Indication: AGITATION
     Route: 048
     Dates: start: 20120605
  7. TROPATEPINE [Suspect]
     Active Substance: TROPATEPINE
     Indication: BIPOLAR DISORDER
     Route: 065
  8. VALPROIC ACID. [Suspect]
     Active Substance: VALPROIC ACID
     Indication: BIPOLAR DISORDER
     Route: 065
     Dates: start: 20120625
  9. TRAMADOL HYDROCHLORIDE. [Suspect]
     Active Substance: TRAMADOL HYDROCHLORIDE
     Indication: ABDOMINAL PAIN
     Route: 065
     Dates: start: 20120625
  10. LOXAPINE. [Suspect]
     Active Substance: LOXAPINE
     Indication: PRODUCT USED FOR UNKNOWN INDICATION
     Route: 065
     Dates: start: 20120625
  11. QUETIAPINE. [Suspect]
     Active Substance: QUETIAPINE
     Indication: BIPOLAR DISORDER
     Route: 048
     Dates: start: 20120605
  12. MORPHINE [Suspect]
     Active Substance: MORPHINE
     Indication: ABDOMINAL PAIN
     Route: 065
     Dates: start: 20120625
  13. DIAZEPAM. [Suspect]
     Active Substance: DIAZEPAM
     Indication: BIPOLAR DISORDER
     Route: 065
     Dates: start: 20120614
  14. LOXAPINE. [Suspect]
     Active Substance: LOXAPINE
     Indication: BIPOLAR DISORDER
     Route: 048
     Dates: start: 20120625
  15. VALPROIC ACID. [Suspect]
     Active Substance: VALPROIC ACID
     Indication: BIPOLAR DISORDER
     Route: 065
     Dates: start: 20120614
  16. TROPATEPINE [Suspect]
     Active Substance: TROPATEPINE
     Indication: AGGRESSION
     Route: 065
  17. TROPATEPINE [Suspect]
     Active Substance: TROPATEPINE
     Indication: AGGRESSION
     Route: 065
     Dates: start: 20120605
  18. TROPATEPINE [Suspect]
     Active Substance: TROPATEPINE
     Indication: AGITATION
     Route: 065
  19. TROPATEPINE [Suspect]
     Active Substance: TROPATEPINE
     Indication: BIPOLAR DISORDER
     Route: 065
     Dates: start: 20120605
  20. QUETIAPINE. [Suspect]
     Active Substance: QUETIAPINE
     Indication: AGGRESSION
     Route: 048
  21. TROPATEPINE [Suspect]
     Active Substance: TROPATEPINE
     Indication: AGITATION
     Route: 065
     Dates: start: 20120605

REACTIONS (14)
  - Necrotising colitis [Fatal]
  - Condition aggravated [Fatal]
  - Staphylococcal infection [Fatal]
  - Intestinal obstruction [Unknown]
  - Intestinal ischaemia [Fatal]
  - Cardiac arrest [Fatal]
  - Candida infection [Fatal]
  - Mesenteric vascular occlusion [Fatal]
  - Large intestine perforation [Fatal]
  - Pneumonia pseudomonal [Fatal]
  - Hepatocellular injury [Unknown]
  - Metabolic acidosis [Unknown]
  - Multiple organ dysfunction syndrome [Fatal]
  - Renal failure [Fatal]

NARRATIVE: CASE EVENT DATE: 20120625
